FAERS Safety Report 24206071 (Version 1)
Quarter: 2024Q3

REPORT INFORMATION
  Report Type: Spontaneous
  Country: US (occurrence: US)
  Receive Date: 20240813
  Receipt Date: 20240813
  Transmission Date: 20241017
  Serious: No
  Sender: TAKEDA
  Company Number: US-TAKEDA-2024TUS080331

PATIENT
  Sex: Male

DRUGS (2)
  1. LIVTENCITY [Suspect]
     Active Substance: MARIBAVIR
     Indication: Follicular lymphoma
     Dosage: UNK
     Route: 065
  2. LIVTENCITY [Suspect]
     Active Substance: MARIBAVIR
     Indication: Cytomegalovirus gastrointestinal ulcer

REACTIONS (2)
  - Insurance issue [Unknown]
  - Off label use [Unknown]
